FAERS Safety Report 5228824-1 (Version None)
Quarter: 2007Q1

REPORT INFORMATION
  Report Type: 
  Country: None (occurrence: None)
  Receive Date: 20061201
  Receipt Date: 20061002
  Transmission Date: 20070707
  Serious: No
  Sender: FDA-Public Use
  Company Number: US200610000403

PATIENT
  Age: 80 Year
  Sex: Female

DRUGS (5)
  1. CYMBALTA [Suspect]
     Indication: BACK PAIN
     Dosage: 30 MG
     Dates: start: 20060930, end: 20060930
  2. ANTIHYPERTENSIVES [Concomitant]
  3. THYROID TAB [Concomitant]
  4. PLETAL (CILOSTAZOL) [Concomitant]
  5. PROVIGIL [Concomitant]

REACTIONS (6)
  - DISTURBANCE IN ATTENTION [None]
  - EAR DISCOMFORT [None]
  - ERUCTATION [None]
  - FEELING ABNORMAL [None]
  - MALAISE [None]
  - NAUSEA [None]
